FAERS Safety Report 6250653-0 (Version None)
Quarter: 2009Q2

REPORT INFORMATION
  Report Type: 
  Country: None (occurrence: None)
  Receive Date: 20090630
  Receipt Date: 20090512
  Transmission Date: 20091009
  Serious: Yes (Hospitalization)
  Sender: FDA-Public Use
  Company Number: KR-PFIZER INC-2009171569

PATIENT
  Age: 64 Year

DRUGS (6)
  1. AXITINIB [Suspect]
     Indication: COLORECTAL CANCER
     Dosage: 2 MG, 2X/DAY
     Route: 048
     Dates: start: 20080821
  2. IRINOTECAN HCL [Suspect]
     Indication: COLORECTAL CANCER
     Dosage: 160 MG, CYCLIC: EVERY 2 WEEKS
     Route: 042
     Dates: start: 20080821
  3. FLUOROURACIL [Suspect]
     Indication: COLORECTAL CANCER
     Dosage: 432 MG, CYCLIC: EVERY 2 WEEKS
     Route: 042
     Dates: start: 20080821
  4. FLUOROURACIL [Suspect]
     Dosage: 2560 MG, CYCLIC: EVERY 2 WEEKS
     Route: 042
     Dates: start: 20080821
  5. LEUCOVORIN CALCIUM [Suspect]
     Indication: COLORECTAL CANCER
     Dosage: 640 MG, CYCLIC: EVERY 2 WEEKS
     Route: 042
     Dates: start: 20080821
  6. LOPEMIN [Concomitant]
     Indication: DIARRHOEA
     Dosage: 2 MG, 3X/DAY
     Dates: start: 20080929

REACTIONS (1)
  - PERIPHERAL SENSORY NEUROPATHY [None]
